FAERS Safety Report 10029880 (Version 2)
Quarter: 2015Q2

REPORT INFORMATION
  Report Type: Spontaneous
  Country: US (occurrence: None)
  Receive Date: 20140306
  Receipt Date: 20150528
  Transmission Date: 20150821
  Serious: Yes (Other)
  Sender: FDA-Public Use
  Company Number: CA-SEPTODONT-201401695

PATIENT
  Age: 49 Year
  Sex: Female

DRUGS (9)
  1. DOMPERIDONE [Concomitant]
     Active Substance: DOMPERIDONE
  2. GLYCON (METFORMIN HYDROCHLORIDE) [Concomitant]
  3. DIAMICRON (GLICLAZIDE) [Concomitant]
     Active Substance: GLICLAZIDE
  4. EPINEPHRINE BITARTRATE\LIDOCAINE HYDROCHLORIDE [Suspect]
     Active Substance: EPINEPHRINE BITARTRATE\LIDOCAINE HYDROCHLORIDE
     Indication: LOCAL ANAESTHESIA
     Route: 004
     Dates: start: 20131211
  5. EPINEPHRINE BITARTRATE\LIDOCAINE HYDROCHLORIDE [Suspect]
     Active Substance: EPINEPHRINE BITARTRATE\LIDOCAINE HYDROCHLORIDE
     Indication: LOCAL ANAESTHESIA
     Route: 004
     Dates: start: 20131211
  6. TOPEX (BENZOCAINE) [Concomitant]
  7. RBEPRAZOLE [Concomitant]
  8. GABAPENTINE [Concomitant]
     Active Substance: GABAPENTIN
  9. RAMIPRIL. [Concomitant]
     Active Substance: RAMIPRIL

REACTIONS (5)
  - Trismus [None]
  - Swelling [None]
  - Pain [None]
  - Drug ineffective [None]
  - Post procedural infection [None]

NARRATIVE: CASE EVENT DATE: 20131216
